FAERS Safety Report 11220217 (Version 1)
Quarter: 2015Q2

REPORT INFORMATION
  Report Type: Report from Study
  Country: US (occurrence: US)
  Receive Date: 20150625
  Receipt Date: 20150625
  Transmission Date: 20150821
  Serious: No
  Sender: FDA-Public Use
  Company Number: US-EXELIXIS-CABO-15005409

PATIENT
  Sex: Male

DRUGS (3)
  1. CABOZANTINIB [Suspect]
     Active Substance: CABOZANTINIB
     Dosage: 60 MG, QD
     Route: 048
     Dates: start: 20150506
  2. HYDROMORPHONE [Concomitant]
     Active Substance: HYDROMORPHONE
  3. CABOZANTINIB [Suspect]
     Active Substance: CABOZANTINIB
     Indication: LUNG NEOPLASM MALIGNANT
     Dosage: 140 MG, QD
     Route: 048
     Dates: start: 20150328, end: 20150505

REACTIONS (10)
  - Mouth ulceration [Unknown]
  - Abdominal pain [Unknown]
  - Diarrhoea [Unknown]
  - Constipation [Unknown]
  - Fatigue [Unknown]
  - Decreased appetite [Unknown]
  - Rash [Unknown]
  - Off label use [Unknown]
  - Aphonia [Unknown]
  - Nasal ulcer [Unknown]
